FAERS Safety Report 10103731 (Version 1)
Quarter: 2014Q2

REPORT INFORMATION
  Report Type: Spontaneous
  Country: DE (occurrence: JP)
  Receive Date: 20140424
  Receipt Date: 20140424
  Transmission Date: 20141212
  Serious: Yes (Hospitalization)
  Sender: FDA-Public Use
  Company Number: JP-FRI-1000066819

PATIENT
  Age: 76 Year
  Sex: Male

DRUGS (1)
  1. MEMANTINE [Suspect]
     Indication: DEMENTIA ALZHEIMER^S TYPE
     Dosage: 20 MG
     Route: 048
     Dates: end: 20140418

REACTIONS (4)
  - Altered state of consciousness [Not Recovered/Not Resolved]
  - Restlessness [Not Recovered/Not Resolved]
  - Blood creatine phosphokinase increased [Not Recovered/Not Resolved]
  - Pyrexia [Not Recovered/Not Resolved]
